FAERS Safety Report 5153333-8 (Version None)
Quarter: 2006Q4

REPORT INFORMATION
  Report Type: 
  Country: None (occurrence: None)
  Receive Date: 20061114
  Receipt Date: 20061030
  Transmission Date: 20070319
  Serious: Yes (Other)
  Sender: FDA-Public Use
  Company Number: 2006SP005230

PATIENT
  Sex: 0

DRUGS (6)
  1. INTEGRILIN [Suspect]
     Indication: ACUTE MYOCARDIAL INFARCTION
  2. INTEGRILIN [Suspect]
     Indication: ANGINA UNSTABLE
  3. INTEGRILIN [Suspect]
     Indication: CORONARY ARTERIAL STENT INSERTION
  4. AAS [Concomitant]
  5. HEPARIN [Concomitant]
  6. PLAVIX [Concomitant]

REACTIONS (7)
  - CARDIAC TAMPONADE [None]
  - EPISTAXIS [None]
  - GINGIVAL BLEEDING [None]
  - HAEMATURIA [None]
  - HAEMOTHORAX [None]
  - POST PROCEDURAL HAEMORRHAGE [None]
  - RECTAL HAEMORRHAGE [None]
